FAERS Safety Report 4293038-9 (Version None)
Quarter: 2004Q1

REPORT INFORMATION
  Report Type: 
  Country: None (occurrence: None)
  Receive Date: 20040210
  Receipt Date: 20040130
  Transmission Date: 20041129
  Serious: Yes (Other)
  Sender: FDA-Public Use
  Company Number: 2004193339JP

PATIENT
  Age: 2 Month
  Sex: Female
  Weight: 4.9 kg

DRUGS (3)
  1. SOLU-MEDROL [Suspect]
     Indication: INFLAMMATION
     Dosage: 20 MG, QD, IV
     Route: 042
     Dates: start: 20031230, end: 20040104
  2. UNASYN [Suspect]
     Indication: BACTERIAL INFECTION
     Dosage: 375 MG, TID, IV
     Route: 042
     Dates: start: 20031230, end: 20040105
  3. SALBUTAMOL SULFATE (SALBUTAMOL SULFATE) [Suspect]
     Indication: BRONCHOSTENOSIS
     Dosage: 0.3 ML, TID, RESPIRATORY
     Route: 055
     Dates: start: 20031230, end: 20040106

REACTIONS (1)
  - PLATELET COUNT INCREASED [None]
